FAERS Safety Report 11632286 (Version 1)
Quarter: 2015Q4

REPORT INFORMATION
  Report Type: Spontaneous
  Country: US (occurrence: US)
  Receive Date: 20151015
  Receipt Date: 20151015
  Transmission Date: 20160304
  Serious: Yes (Other)
  Sender: FDA-Public Use
  Company Number: US-SA-2015SA158620

PATIENT
  Age: 25 Year
  Sex: Female

DRUGS (1)
  1. DIPHENHYDRAMINE. [Suspect]
     Active Substance: DIPHENHYDRAMINE
     Route: 048

REACTIONS (6)
  - Status epilepticus [Unknown]
  - Intentional overdose [Recovering/Resolving]
  - Hypokalaemia [Unknown]
  - Electrocardiogram ST segment depression [Unknown]
  - Hypotension [Recovering/Resolving]
  - Electrocardiogram QRS complex prolonged [Recovering/Resolving]
